FAERS Safety Report 24356781 (Version 1)
Quarter: 2024Q3

REPORT INFORMATION
  Report Type: Other
  Country: FR (occurrence: FR)
  Receive Date: 20240924
  Receipt Date: 20240924
  Transmission Date: 20241017
  Serious: Yes (Other)
  Sender: DEXCEL
  Company Number: FR-DEXPHARM-2024-3200

PATIENT
  Age: 50 Year
  Sex: Female
  Weight: 135 kg

DRUGS (15)
  1. METHOTREXATE [Interacting]
     Active Substance: METHOTREXATE
     Route: 050
  2. FOLIC ACID [Concomitant]
     Active Substance: FOLIC ACID
  3. LEVOTHYROXINE [Concomitant]
     Active Substance: LEVOTHYROXINE\LEVOTHYROXINE SODIUM
  4. ALTHIAZIDE\SPIRONOLACTONE [Interacting]
     Active Substance: ALTHIAZIDE\SPIRONOLACTONE
     Dosage: ORAL IRON
     Route: 050
  5. RAMIPRIL [Interacting]
     Active Substance: RAMIPRIL
  6. PROPRANOLOL [Concomitant]
     Active Substance: PROPRANOLOL HYDROCHLORIDE
  7. OMEPRAZOLE [Interacting]
     Active Substance: OMEPRAZOLE
  8. PAZOPANIB [Interacting]
     Active Substance: PAZOPANIB
     Indication: Renal cell carcinoma
     Dosage: 600 MG/DAY
  9. PAZOPANIB [Interacting]
     Active Substance: PAZOPANIB
     Indication: Renal cell carcinoma
     Dosage: DOSE FRACTIONING INTO TWO INTAKES (I.E., 600?MG BID) WITH FOOD
  10. PAZOPANIB [Interacting]
     Active Substance: PAZOPANIB
     Indication: Renal cell carcinoma
     Dosage: 800 MG QD
  11. PAZOPANIB [Interacting]
     Active Substance: PAZOPANIB
     Indication: Renal cell carcinoma
     Dosage: 1200 MG QD
  12. PAZOPANIB [Interacting]
     Active Substance: PAZOPANIB
     Indication: Renal cell carcinoma
     Dosage: 1200 MG QD WITH FOOD
  13. CHOLECALCIFEROL [Concomitant]
     Active Substance: CHOLECALCIFEROL
  14. DESLORATADINE [Concomitant]
     Active Substance: DESLORATADINE
  15. TINZAPARIN [Concomitant]
     Active Substance: TINZAPARIN

REACTIONS (5)
  - Drug interaction [Unknown]
  - Melaena [Unknown]
  - Abdominal pain upper [Unknown]
  - Drug level decreased [Unknown]
  - Nausea [Unknown]
